FAERS Safety Report 15207261 (Version 5)
Quarter: 2019Q4

REPORT INFORMATION
  Report Type: Report from Study
  Country: JP (occurrence: JP)
  Receive Date: 20180727
  Receipt Date: 20191202
  Transmission Date: 20200122
  Serious: Yes (Hospitalization)
  Sender: FDA-Public Use
  Company Number: PHJP2018JP014409

PATIENT
  Age: 49 Year
  Sex: Male

DRUGS (20)
  1. SIGNIFOR LAR [Suspect]
     Active Substance: PASIREOTIDE
     Dosage: 60 MG
     Route: 030
     Dates: start: 20180809
  2. SOMAVERT [Concomitant]
     Active Substance: PEGVISOMANT
     Indication: ACROMEGALY
     Dosage: 15 MG
     Route: 030
  3. SIGNIFOR LAR [Suspect]
     Active Substance: PASIREOTIDE
     Dosage: 60 MG
     Route: 030
     Dates: start: 20190312
  4. SIGNIFOR LAR [Suspect]
     Active Substance: PASIREOTIDE
     Dosage: 60 MG
     Route: 030
     Dates: start: 20190611
  5. SIGNIFOR LAR [Suspect]
     Active Substance: PASIREOTIDE
     Dosage: 60 MG
     Route: 030
     Dates: start: 20190709
  6. SIGNIFOR LAR [Suspect]
     Active Substance: PASIREOTIDE
     Dosage: 60 MG,UNK
     Route: 030
     Dates: start: 20181002
  7. SIGNIFOR LAR [Suspect]
     Active Substance: PASIREOTIDE
     Dosage: 60 MG
     Route: 030
     Dates: start: 20181204
  8. SIGNIFOR LAR [Suspect]
     Active Substance: PASIREOTIDE
     Dosage: 60 MG
     Route: 030
     Dates: start: 20191001
  9. SIGNIFOR LAR [Suspect]
     Active Substance: PASIREOTIDE
     Dosage: 60 MG
     Route: 030
     Dates: start: 20190404
  10. SIGNIFOR LAR [Suspect]
     Active Substance: PASIREOTIDE
     Dosage: 60 MG
     Route: 030
     Dates: start: 20190514
  11. SIGNIFOR LAR [Suspect]
     Active Substance: PASIREOTIDE
     Dosage: 60 MG,UNK
     Route: 065
     Dates: start: 20181106
  12. CABASER [Concomitant]
     Active Substance: CABERGOLINE
     Indication: PRODUCT USED FOR UNKNOWN INDICATION
     Dosage: 1 MG, QD
     Route: 065
  13. SIGNIFOR LAR [Suspect]
     Active Substance: PASIREOTIDE
     Dosage: 60 MG
     Route: 030
     Dates: start: 20190108
  14. SIGNIFOR LAR [Suspect]
     Active Substance: PASIREOTIDE
     Dosage: 60 MG
     Route: 030
     Dates: start: 20190212
  15. SIGNIFOR LAR [Suspect]
     Active Substance: PASIREOTIDE
     Dosage: 60 MG
     Route: 030
     Dates: start: 20190806
  16. SIGNIFOR LAR [Suspect]
     Active Substance: PASIREOTIDE
     Dosage: 60 MG
     Route: 030
     Dates: start: 20190903
  17. SIGNIFOR LAR [Suspect]
     Active Substance: PASIREOTIDE
     Indication: ACROMEGALY
     Dosage: 60 MG,UNK
     Route: 030
     Dates: start: 20180703
  18. SIGNIFOR LAR [Suspect]
     Active Substance: PASIREOTIDE
     Dosage: 60 MG
     Route: 030
     Dates: start: 20180904
  19. METGLUCO [Concomitant]
     Active Substance: METFORMIN HYDROCHLORIDE
     Indication: DIABETES MELLITUS
     Dosage: 1000 MG, QD
     Route: 048
  20. METGLUCO [Concomitant]
     Active Substance: METFORMIN HYDROCHLORIDE
     Dosage: 1500 MG
     Route: 048

REACTIONS (3)
  - Polyuria [Unknown]
  - Polydipsia [Unknown]
  - Hyperglycaemia [Recovering/Resolving]

NARRATIVE: CASE EVENT DATE: 20180724
